FAERS Safety Report 10450771 (Version 2)
Quarter: 2014Q3

REPORT INFORMATION
  Report Type: Report from Study
  Country: US (occurrence: US)
  Receive Date: 20140912
  Receipt Date: 20140926
  Transmission Date: 20150326
  Serious: Yes (Other)
  Sender: FDA-Public Use
  Company Number: PHEH2014US017956

PATIENT
  Age: 50 Year
  Sex: Female
  Weight: 48.53 kg

DRUGS (5)
  1. GILENYA [Suspect]
     Active Substance: FINGOLIMOD HYDROCHLORIDE
     Indication: MULTIPLE SCLEROSIS
     Dosage: 0.5 MG, QD
     Route: 048
     Dates: start: 20131014
  2. BACLOFEN. [Concomitant]
     Active Substance: BACLOFEN
     Indication: MUSCLE SPASTICITY
     Dosage: 1 DF, TID
     Dates: start: 20140806
  3. LISINOPRIL/HYDROCHLOROTHIAZID [Concomitant]
     Dosage: UNK UKN, UNK
     Dates: start: 20140809
  4. PATADAY [Concomitant]
     Active Substance: OLOPATADINE HYDROCHLORIDE
     Dosage: 1 DRP, QD
  5. SERTRALINE [Concomitant]
     Active Substance: SERTRALINE HYDROCHLORIDE
     Dosage: 150 MG, QD
     Route: 048
     Dates: start: 20140806

REACTIONS (9)
  - Type 2 diabetes mellitus [Unknown]
  - Blood glucose increased [Unknown]
  - Aspartate aminotransferase decreased [Unknown]
  - Blood sodium decreased [Unknown]
  - Lymphocyte count decreased [Unknown]
  - Platelet count increased [Unknown]
  - Blood alkaline phosphatase increased [Unknown]
  - Glomerular filtration rate decreased [Unknown]
  - Haematocrit decreased [Unknown]

NARRATIVE: CASE EVENT DATE: 20140717
